FAERS Safety Report 10628602 (Version 1)
Quarter: 2014Q4

REPORT INFORMATION
  Report Type: Spontaneous
  Country: US (occurrence: US)
  Receive Date: 20141205
  Receipt Date: 20141205
  Transmission Date: 20150529
  Serious: No
  Sender: FDA-Public Use
  Company Number: US-BRISTOL-MYERS SQUIBB COMPANY-21161591

PATIENT

DRUGS (1)
  1. REYATAZ [Suspect]
     Active Substance: ATAZANAVIR SULFATE
     Indication: HIV INFECTION
     Route: 048

REACTIONS (3)
  - Bilirubin conjugated increased [Unknown]
  - Haemoglobin decreased [Unknown]
  - Haptoglobin abnormal [Unknown]

NARRATIVE: CASE EVENT DATE: 20140630
